FAERS Safety Report 23836229 (Version 2)
Quarter: 2024Q2

REPORT INFORMATION
  Report Type: Spontaneous
  Country: IT (occurrence: IT)
  Receive Date: 20240509
  Receipt Date: 20240516
  Transmission Date: 20240717
  Serious: Yes (Hospitalization, Other)
  Sender: FDA-Public Use
  Company Number: None

PATIENT
  Age: 47 Year
  Sex: Female
  Weight: 57 kg

DRUGS (2)
  1. AJOVY [Suspect]
     Active Substance: FREMANEZUMAB-VFRM
     Indication: Migraine prophylaxis
     Dosage: STARTING YOUR CYCLE WITH AJOVY:? - I DOSE AJOVY ON 02.19.24? - II DOSE AJOVY ON 03.19.24?(DOSAGE ...
     Route: 058
     Dates: start: 20240319, end: 20240319
  2. ZOMIG [Suspect]
     Active Substance: ZOLMITRIPTAN
     Indication: Migraine without aura
     Dosage: ZOMIG 2.5 RAPILMET (1 TABLET IN CASE OF MIGRAINE ATTACK). THE PATIENT HAD TAKEN APPROXIMATELY 5 Z...
     Route: 048
     Dates: start: 20240405, end: 20240405

REACTIONS (5)
  - Acute myocardial infarction [Recovering/Resolving]
  - Angina pectoris [Unknown]
  - Troponin C increased [Unknown]
  - Chest discomfort [Recovering/Resolving]
  - Chest pain [Recovering/Resolving]

NARRATIVE: CASE EVENT DATE: 20240401
